FAERS Safety Report 24726119 (Version 1)
Quarter: 2024Q4

REPORT INFORMATION
  Report Type: Spontaneous
  Country: CN (occurrence: CN)
  Receive Date: 20241212
  Receipt Date: 20241212
  Transmission Date: 20250114
  Serious: Yes (Hospitalization)
  Sender: NEXUS PHARMACEUTICALS
  Company Number: CN-Nexus Pharma-000345

PATIENT
  Age: 50 Year
  Sex: Male

DRUGS (1)
  1. ARSENIC TRIOXIDE [Suspect]
     Active Substance: ARSENIC TRIOXIDE
     Indication: Breast cyst
     Dosage: DOSAGE UNKNOWN, SIX TIMES OVER THE THREE MONTHS

REACTIONS (9)
  - Drug level increased [Recovered/Resolved]
  - Toxicity to various agents [Recovered/Resolved]
  - Hepatic function abnormal [Recovered/Resolved]
  - Peripheral sensorimotor neuropathy [Recovered/Resolved]
  - Pulmonary mass [Recovered/Resolved]
  - Cerebral disorder [Recovered/Resolved]
  - Klebsiella infection [Recovered/Resolved]
  - Enterobacter infection [Recovered/Resolved]
  - Hyperkeratosis [Recovered/Resolved]
